FAERS Safety Report 8537736-7 (Version None)
Quarter: 2012Q3

REPORT INFORMATION
  Report Type: 
  Country: None (occurrence: None)
  Receive Date: 20120725
  Receipt Date: 20120720
  Transmission Date: 20120928
  Serious: Yes (Death)
  Sender: FDA-Public Use
  Company Number: MX-ALLERGAN-1208646US

PATIENT
  Age: 85 Year
  Sex: Female
  Weight: 60 kg

DRUGS (2)
  1. UNSPECIFIED MEDICATION FOR PARKINSONISM [Suspect]
     Indication: PARKINSONISM
  2. BOTULINUM TOXIN TYPE A [Suspect]
     Indication: MUSCLE SPASTICITY
     Dosage: 400 UNITS, SINGLE
     Dates: start: 20120601, end: 20120601

REACTIONS (2)
  - CHOKING [None]
  - DYSPHAGIA [None]
